FAERS Safety Report 10250661 (Version 1)
Quarter: 2014Q2

REPORT INFORMATION
  Report Type: Report from Study
  Country: IE (occurrence: IE)
  Receive Date: 20140620
  Receipt Date: 20140620
  Transmission Date: 20141212
  Serious: Yes (Hospitalization)
  Sender: FDA-Public Use
  Company Number: IE-GLAXOSMITHKLINE-B1005263A

PATIENT
  Sex: Female

DRUGS (8)
  1. VOTRIENT [Suspect]
     Indication: BREAST CANCER
     Dosage: 800MG PER DAY
     Route: 048
     Dates: start: 20140331, end: 201405
  2. IMODIUM [Concomitant]
  3. MOTILIUM [Concomitant]
  4. OXYCONTIN [Concomitant]
  5. LYRICA [Concomitant]
  6. ZOTON [Concomitant]
  7. NEBILET [Concomitant]
  8. OXYNORM [Concomitant]

REACTIONS (1)
  - Lung infection [Not Recovered/Not Resolved]
